FAERS Safety Report 9381710 (Version 1)
Quarter: 2013Q3

REPORT INFORMATION
  Report Type: Report from Study
  Country: PE (occurrence: PE)
  Receive Date: 20130703
  Receipt Date: 20130703
  Transmission Date: 20140515
  Serious: Yes (Death)
  Sender: FDA-Public Use
  Company Number: PE-ASTELLAS-2013US006850

PATIENT
  Age: 75 Year
  Sex: Female

DRUGS (1)
  1. ERLOTINIB TABLET [Suspect]
     Indication: LUNG NEOPLASM MALIGNANT
     Dosage: 100 MG ONCE EVERY 30 DAYS
     Route: 048
     Dates: start: 20110520

REACTIONS (2)
  - Incorrect dose administered [Unknown]
  - Death [Fatal]
